FAERS Safety Report 12145298 (Version 1)
Quarter: 2016Q1

REPORT INFORMATION
  Report Type: Spontaneous
  Country: TR (occurrence: TR)
  Receive Date: 20160304
  Receipt Date: 20160304
  Transmission Date: 20160526
  Serious: Yes (Other)
  Sender: FDA-Public Use
  Company Number: PHHY2016TR028843

PATIENT
  Sex: Male

DRUGS (1)
  1. FORADIL [Suspect]
     Active Substance: FORMOTEROL FUMARATE
     Indication: PRODUCT USED FOR UNKNOWN INDICATION
     Dosage: UNK, BID (IN THE MORNING AND EVENING)
     Route: 065

REACTIONS (3)
  - General physical health deterioration [Unknown]
  - Coma [Unknown]
  - Dyspnoea [Unknown]
